FAERS Safety Report 16655763 (Version 1)
Quarter: 2019Q3

REPORT INFORMATION
  Report Type: Report from Study
  Country: BR (occurrence: BR)
  Receive Date: 20190801
  Receipt Date: 20190801
  Transmission Date: 20191004
  Serious: Yes (Hospitalization, Other)
  Sender: FDA-Public Use
  Company Number: PHHY2019BR021040

PATIENT
  Age: 60 Year
  Sex: Female
  Weight: 46 kg

DRUGS (3)
  1. COSENTYX [Suspect]
     Active Substance: SECUKINUMAB
     Indication: ANKYLOSING SPONDYLITIS
     Dosage: 150 MG, UNK
     Route: 058
     Dates: start: 20181126
  2. COSENTYX [Suspect]
     Active Substance: SECUKINUMAB
     Dosage: 150 MG, UNK
     Route: 058
     Dates: start: 20190124
  3. SULFASALAZINE. [Concomitant]
     Active Substance: SULFASALAZINE
     Indication: UVEITIS
     Dosage: UNK
     Route: 065

REACTIONS (5)
  - Myocardial infarction [Unknown]
  - Lung disorder [Unknown]
  - Malaise [Unknown]
  - Cough [Not Recovered/Not Resolved]
  - Cardiac disorder [Unknown]

NARRATIVE: CASE EVENT DATE: 20190714
